FAERS Safety Report 8809428 (Version 3)
Quarter: 2013Q1

REPORT INFORMATION
  Report Type: Spontaneous
  Country: GB (occurrence: GB)
  Receive Date: 20120926
  Receipt Date: 20130228
  Transmission Date: 20140127
  Serious: Yes (Other)
  Sender: FDA-Public Use
  Company Number: GB-ABBOTT-12P-167-0986010-00

PATIENT
  Age: 82 Year
  Sex: Male

DRUGS (1)
  1. PROSTAP [Suspect]
     Indication: PROSTATE CANCER
     Route: 058
     Dates: start: 20120420, end: 201209

REACTIONS (2)
  - Lethargy [Recovering/Resolving]
  - Depression [Recovering/Resolving]
